FAERS Safety Report 7133712-X (Version None)
Quarter: 2010Q4

REPORT INFORMATION
  Report Type: 
  Country: None (occurrence: None)
  Receive Date: 20101203
  Receipt Date: 20101112
  Transmission Date: 20110411
  Serious: Yes (Other)
  Sender: FDA-Public Use
  Company Number: JP-AMGEN-JPNSP2010005241

PATIENT

DRUGS (7)
  1. ENBREL [Suspect]
     Indication: RHEUMATOID ARTHRITIS
     Dosage: 25 MG, WEEKLY
     Route: 058
     Dates: start: 20090304, end: 20091101
  2. ENBREL [Suspect]
     Dosage: 25 MG, 2X/WEEK
     Dates: start: 20091102, end: 20100915
  3. RHEUMATREX [Concomitant]
     Indication: RHEUMATOID ARTHRITIS
     Dosage: 6 MG, WEEKLY
     Route: 048
     Dates: start: 20100101
  4. RHEUMATREX [Concomitant]
     Dosage: 8 MG, WEEKLY
     Route: 048
  5. RHEUMATREX [Concomitant]
     Dosage: 6 MG, WEEKLY
     Route: 048
     Dates: end: 20100915
  6. ARAVA [Concomitant]
     Indication: RHEUMATOID ARTHRITIS
     Dosage: UNK
     Route: 048
     Dates: end: 20090514
  7. ISONIAZID [Concomitant]
     Dosage: UNK
     Route: 048
     Dates: start: 20090426, end: 20090624

REACTIONS (5)
  - GASTRIC CANCER [None]
  - GRANULOMA [None]
  - LYMPH NODE TUBERCULOSIS [None]
  - MYCOBACTERIAL INFECTION [None]
  - NECROSIS [None]
